FAERS Safety Report 17128674 (Version 1)
Quarter: 2019Q4

REPORT INFORMATION
  Report Type: Spontaneous
  Country: US (occurrence: US)
  Receive Date: 20191206
  Receipt Date: 20191206
  Transmission Date: 20200122
  Serious: Yes (Other)
  Sender: FDA-Public Use
  Company Number: None

PATIENT
  Age: 37 Year
  Sex: Female

DRUGS (14)
  1. AZELASTIN [Concomitant]
  2. FOLIC ACID. [Concomitant]
     Active Substance: FOLIC ACID
  3. MELATONIN [Concomitant]
     Active Substance: MELATONIN
  4. OLOPATADINE. [Concomitant]
     Active Substance: OLOPATADINE
  5. BREO ELLIPTA [Concomitant]
     Active Substance: FLUTICASONE FUROATE\VILANTEROL TRIFENATATE
  6. ENBREL [Suspect]
     Active Substance: ETANERCEPT
     Indication: RHEUMATOID ARTHRITIS
     Dosage: ?          OTHER FREQUENCY:EVERY 7 DAYS;?
     Route: 058
     Dates: start: 20191117, end: 20191128
  7. METOPROLOL. [Concomitant]
     Active Substance: METOPROLOL
  8. VENTOLIN [Concomitant]
     Active Substance: ALBUTEROL SULFATE
  9. BIOTIN [Concomitant]
     Active Substance: BIOTIN
  10. EMGALITY [Concomitant]
     Active Substance: GALCANEZUMAB-GNLM
  11. XYREM [Concomitant]
     Active Substance: SODIUM OXYBATE
  12. FLUTICASONE PROPIONATE. [Concomitant]
     Active Substance: FLUTICASONE PROPIONATE
  13. SINGULAIR [Concomitant]
     Active Substance: MONTELUKAST SODIUM
  14. PRELIEF [Concomitant]
     Active Substance: CALCIUM GLYCEROPHOSPHATE

REACTIONS (1)
  - Urticaria [None]

NARRATIVE: CASE EVENT DATE: 20191202
